FAERS Safety Report 4459821-1 (Version None)
Quarter: 2004Q3

REPORT INFORMATION
  Report Type: 
  Country: None (occurrence: None)
  Receive Date: 20040928
  Receipt Date: 20040308
  Transmission Date: 20050211
  Serious: No
  Sender: FDA-Public Use
  Company Number: US-BRISTOL-MYERS SQUIBB COMPANY-12527115

PATIENT
  Age: 58 Year
  Sex: Female
  Weight: 91 kg

DRUGS (8)
  1. AMOXICILLIN [Suspect]
     Indication: PHARYNGITIS STREPTOCOCCAL
     Route: 048
     Dates: start: 20040304
  2. GLUCOPHAGE [Concomitant]
  3. COVERA-HS [Concomitant]
  4. AMARYL [Concomitant]
  5. LESCOL [Concomitant]
  6. DIOVAN [Concomitant]
  7. VITAMIN E [Concomitant]
  8. CHONDROITIN + GLUCOSAMINE [Concomitant]

REACTIONS (1)
  - BLOOD GLUCOSE INCREASED [None]
